FAERS Safety Report 21166833 (Version 1)
Quarter: 2022Q3

REPORT INFORMATION
  Report Type: Spontaneous
  Country: US (occurrence: US)
  Receive Date: 20220803
  Receipt Date: 20220803
  Transmission Date: 20221027
  Serious: No
  Sender: FDA-Public Use
  Company Number: US-SAREPTA THERAPEUTICS INC.-SRP2022-002339

PATIENT
  Age: 15 Year
  Sex: Male
  Weight: 94.3 kg

DRUGS (25)
  1. AMONDYS 45 [Suspect]
     Active Substance: CASIMERSEN
     Indication: Duchenne muscular dystrophy
     Dosage: 2800 MILLIGRAM, WEEKLY
     Route: 042
     Dates: start: 20220505, end: 20220520
  2. TYLENOL [Concomitant]
     Active Substance: ACETAMINOPHEN
     Indication: Pain
     Dosage: 650 MILLIGRAM, Q6H (PRN)
     Route: 048
     Dates: start: 20210908
  3. TYLENOL [Concomitant]
     Active Substance: ACETAMINOPHEN
     Indication: Pyrexia
  4. ALBUTEROL SULFATE [Concomitant]
     Active Substance: ALBUTEROL SULFATE
     Indication: Cough
     Dosage: 2.5 MG/ 3 ML, NEBULIZER Q4H, PRN
     Dates: start: 20210908, end: 20220404
  5. ALBUTEROL SULFATE [Concomitant]
     Active Substance: ALBUTEROL SULFATE
     Indication: Wheezing
  6. ALBUTEROL SULFATE [Concomitant]
     Active Substance: ALBUTEROL SULFATE
     Indication: Dyspnoea
  7. ALBUTEROL SULFATE [Concomitant]
     Active Substance: ALBUTEROL SULFATE
     Indication: Use of accessory respiratory muscles
  8. ASPIRIN [Concomitant]
     Active Substance: ASPIRIN
     Indication: Product used for unknown indication
     Dosage: 81 MILLIGRAM, QD
     Route: 048
     Dates: start: 20210908
  9. TUMS EX [Concomitant]
     Active Substance: CALCIUM CARBONATE
     Indication: Product used for unknown indication
     Dosage: 750 MILLIGRAM, BID
     Route: 048
     Dates: start: 20210908
  10. DIGOXIN [Concomitant]
     Active Substance: DIGOXIN
     Indication: Product used for unknown indication
     Dosage: 125 MICROGRAM, BID
     Route: 048
     Dates: start: 20210908
  11. VITAMIN D3 [Concomitant]
     Active Substance: CHOLECALCIFEROL
     Indication: Product used for unknown indication
     Dosage: 25 MICROGRAM, QD
     Route: 048
     Dates: start: 20211102
  12. LASIX [Concomitant]
     Active Substance: FUROSEMIDE
     Indication: Product used for unknown indication
     Dosage: 40 MILLIGRAM, BID
     Route: 048
     Dates: start: 20210908, end: 20220404
  13. ATROVENT HFA [Concomitant]
     Active Substance: IPRATROPIUM BROMIDE
     Indication: Increased bronchial secretion
     Dosage: 17 MICROGRAM, 1 TO 4 PUFFS TO BUCCAL MUCOSA AS OFTEN AS Q4H PRN
     Route: 048
     Dates: start: 20210908, end: 20220404
  14. XOPENEX HFA [Concomitant]
     Active Substance: LEVALBUTEROL TARTRATE
     Indication: Wheezing
     Dosage: 45 MICROGRAM, 1 PUFF Q4H PRN
     Route: 048
     Dates: start: 20211126
  15. COZAAR [Concomitant]
     Active Substance: LOSARTAN POTASSIUM
     Indication: Product used for unknown indication
     Dosage: 50 MILLIGRAM, QD
     Route: 048
     Dates: start: 20210908, end: 20220404
  16. MELATONIN [Concomitant]
     Active Substance: MELATONIN
     Indication: Product used for unknown indication
     Dosage: 15 MILLIGRAM, QD
     Route: 048
     Dates: start: 20210929
  17. LOPRESSOR [Concomitant]
     Active Substance: METOPROLOL TARTRATE
     Indication: Product used for unknown indication
     Dosage: 25 MILLIGRAM, BID
     Route: 048
     Dates: start: 20210908
  18. BACTROBAN [Concomitant]
     Active Substance: MUPIROCIN\MUPIROCIN CALCIUM
     Indication: Product used for unknown indication
     Dosage: APPLY TOP TP AFFECTED AREA, TID
     Route: 061
     Dates: start: 20211209, end: 20220404
  19. NYSTOP [Concomitant]
     Active Substance: NYSTATIN
     Indication: Skin irritation
     Dosage: APPLY TOP TO AFFECTED AREA, PRN
     Route: 061
     Dates: start: 20210908
  20. CEROVITE JR [Concomitant]
     Indication: Product used for unknown indication
     Dosage: 18 MILLIGRAM, QD
     Route: 048
     Dates: start: 20210907, end: 20220404
  21. SILVADENE [Concomitant]
     Active Substance: SILVER SULFADIAZINE
     Indication: Product used for unknown indication
     Dosage: APPLY TOP TO AFFECTED AREA TO BURN, QD
     Route: 061
     Dates: start: 20211206
  22. ALDACTONE [Concomitant]
     Active Substance: SPIRONOLACTONE
     Indication: Product used for unknown indication
     Dosage: 12.5 MILLIGRAM, BID
     Route: 048
     Dates: start: 20210908
  23. TRIAMCINOLONE ACETONIDE [Concomitant]
     Active Substance: TRIAMCINOLONE ACETONIDE
     Indication: Product used for unknown indication
     Dosage: APPLY TO AFFECTED AREA, BID
     Route: 061
     Dates: start: 20210908
  24. DESITIN [ZINC OXIDE] [Concomitant]
     Indication: Skin irritation
     Dosage: APPLY TOP TO AFFECTED AREA PRN
     Route: 061
     Dates: start: 20210908
  25. BOUDREAUXS BUTT [Concomitant]
     Indication: Skin irritation
     Dosage: APPLY TOP TO AFFECTED AREA PRN
     Route: 061
     Dates: start: 20210908

REACTIONS (1)
  - Poor venous access [Not Recovered/Not Resolved]

NARRATIVE: CASE EVENT DATE: 20220526
